FAERS Safety Report 18321958 (Version 3)
Quarter: 2020Q4

REPORT INFORMATION
  Report Type: Spontaneous
  Country: US (occurrence: US)
  Receive Date: 20200928
  Receipt Date: 20201208
  Transmission Date: 20210113
  Serious: No
  Sender: FDA-Public Use
  Company Number: US-PFIZER INC-2020371121

PATIENT
  Age: 74 Year
  Sex: Female
  Weight: 68.95 kg

DRUGS (2)
  1. LETROZOLE. [Suspect]
     Active Substance: LETROZOLE
     Indication: BREAST CANCER METASTATIC
     Dosage: 2.5 MG, 1X/DAY (EVERY DAY)
     Dates: start: 2016
  2. IBRANCE [Suspect]
     Active Substance: PALBOCICLIB
     Indication: BREAST CANCER METASTATIC
     Dosage: 100 MG, CYCLIC (21 DAYS AND OFF 7DAYS)
     Route: 048
     Dates: start: 2016

REACTIONS (8)
  - Swelling [Not Recovered/Not Resolved]
  - Arthritis [Unknown]
  - Swelling face [Not Recovered/Not Resolved]
  - Pharyngeal swelling [Unknown]
  - Ear swelling [Unknown]
  - Joint swelling [Unknown]
  - Mouth swelling [Not Recovered/Not Resolved]
  - Glossodynia [Recovered/Resolved]
